FAERS Safety Report 9776540 (Version 3)
Quarter: 2014Q4

REPORT INFORMATION
  Report Type: Report from Study
  Country: US (occurrence: US)
  Receive Date: 20131220
  Receipt Date: 20141229
  Transmission Date: 20150529
  Serious: Yes (Other)
  Sender: FDA-Public Use
  Company Number: US-ABBVIE-13P-163-1181652-00

PATIENT
  Age: 35 Year
  Sex: Female

DRUGS (12)
  1. HUMIRA [Suspect]
     Active Substance: ADALIMUMAB
     Route: 058
     Dates: start: 201309, end: 201401
  2. RANITIDINE [Suspect]
     Active Substance: RANITIDINE\RANITIDINE HYDROCHLORIDE
     Indication: DYSPEPSIA
     Route: 065
  3. HUMIRA [Suspect]
     Active Substance: ADALIMUMAB
     Route: 058
     Dates: start: 201405
  4. SINGULAIR [Concomitant]
     Active Substance: MONTELUKAST SODIUM
     Indication: ASTHMA
  5. SINGULAIR [Concomitant]
     Active Substance: MONTELUKAST SODIUM
     Indication: HYPERSENSITIVITY
  6. OMEPRAZOLE. [Concomitant]
     Active Substance: OMEPRAZOLE
     Indication: DYSPEPSIA
     Dates: start: 2013
  7. HUMIRA [Suspect]
     Active Substance: ADALIMUMAB
     Indication: PSORIATIC ARTHROPATHY
     Route: 058
     Dates: start: 2009
  8. HUMIRA [Suspect]
     Active Substance: ADALIMUMAB
     Route: 058
  9. HUMIRA [Suspect]
     Active Substance: ADALIMUMAB
     Route: 058
     Dates: start: 201408
  10. CLOMID [Suspect]
     Active Substance: CLOMIPHENE CITRATE
     Indication: INFERTILITY
     Route: 065
  11. ZYRTEC [Concomitant]
     Active Substance: CETIRIZINE HYDROCHLORIDE
     Indication: HYPERSENSITIVITY
  12. UNKNOWN INHALERS [Concomitant]
     Indication: ASTHMA

REACTIONS (26)
  - Nephrolithiasis [Recovered/Resolved]
  - Infertility [Not Recovered/Not Resolved]
  - Headache [Unknown]
  - Onychoclasis [Unknown]
  - Gastrointestinal infection [Unknown]
  - Drug ineffective [Unknown]
  - Fatigue [Unknown]
  - Abdominal pain [Unknown]
  - Vitamin D decreased [Recovering/Resolving]
  - Cellulitis [Unknown]
  - Joint stiffness [Unknown]
  - Injection site bruising [Not Recovered/Not Resolved]
  - Polycystic ovaries [Unknown]
  - Dysphonia [Unknown]
  - Ovarian cyst [Recovered/Resolved]
  - Arthralgia [Unknown]
  - Dyspepsia [Unknown]
  - Injection site haemorrhage [Recovered/Resolved]
  - Sinusitis [Unknown]
  - Injection site pain [Unknown]
  - Abortion spontaneous [Unknown]
  - Arthritis [Unknown]
  - Temperature intolerance [Unknown]
  - Ovarian cyst [Unknown]
  - Drug ineffective [Unknown]
  - Disturbance in attention [Unknown]

NARRATIVE: CASE EVENT DATE: 2012
